FAERS Safety Report 21233883 (Version 1)
Quarter: 2022Q3

REPORT INFORMATION
  Report Type: Spontaneous
  Country: US (occurrence: US)
  Receive Date: 20220819
  Receipt Date: 20220819
  Transmission Date: 20221027
  Serious: No
  Sender: FDA-Public Use
  Company Number: US-JNJFOC-20220840151

PATIENT
  Sex: Male

DRUGS (2)
  1. PONVORY [Suspect]
     Active Substance: PONESIMOD
     Indication: Multiple sclerosis
     Route: 065
     Dates: start: 20220817
  2. PONVORY [Suspect]
     Active Substance: PONESIMOD
     Route: 065
     Dates: start: 202208

REACTIONS (5)
  - Dyspnoea [Unknown]
  - Fatigue [Unknown]
  - Anxiety [Unknown]
  - Panic attack [Unknown]
  - Drug hypersensitivity [Unknown]

NARRATIVE: CASE EVENT DATE: 20220817
